FAERS Safety Report 15158061 (Version 3)
Quarter: 2018Q3

REPORT INFORMATION
  Report Type: Spontaneous
  Country: CH (occurrence: CH)
  Receive Date: 20180718
  Receipt Date: 20180731
  Transmission Date: 20181010
  Serious: Yes (Hospitalization, Other)
  Sender: FDA-Public Use
  Company Number: CH-MYLANLABS-2018M1052433

PATIENT
  Age: 52 Year
  Sex: Female

DRUGS (6)
  1. CYKLOKAPRON [Suspect]
     Active Substance: TRANEXAMIC ACID
     Indication: ADENOMYOSIS
     Dosage: UNK
     Dates: start: 20180616
  2. DUPHASTON [Suspect]
     Active Substance: DYDROGESTERONE
     Dosage: UNK
     Dates: start: 20180616
  3. PANTOZOL [Concomitant]
     Active Substance: PANTOPRAZOLE SODIUM
     Indication: PRODUCT USED FOR UNKNOWN INDICATION
     Dosage: UNK
  4. CYKLOKAPRON [Suspect]
     Active Substance: TRANEXAMIC ACID
     Indication: METRORRHAGIA
     Dosage: 1.5 TO 3 G/DAY, QD
     Route: 048
     Dates: start: 20180529, end: 20180604
  5. DUPHASTON [Suspect]
     Active Substance: DYDROGESTERONE
     Indication: PRODUCT USED FOR UNKNOWN INDICATION
     Dosage: UNK, Q2D
     Route: 048
     Dates: start: 20180605, end: 20180614
  6. CYKLOKAPRON [Suspect]
     Active Substance: TRANEXAMIC ACID
     Indication: VAGINAL HAEMORRHAGE

REACTIONS (2)
  - Deep vein thrombosis [Recovered/Resolved]
  - Pulmonary embolism [Recovered/Resolved]

NARRATIVE: CASE EVENT DATE: 20180623
